FAERS Safety Report 14655158 (Version 8)
Quarter: 2025Q1

REPORT INFORMATION
  Report Type: Spontaneous
  Country: CA (occurrence: CA)
  Receive Date: 20180319
  Receipt Date: 20250123
  Transmission Date: 20250408
  Serious: Yes (Hospitalization, Other)
  Sender: BOEHRINGER INGELHEIM
  Company Number: CA-BOEHRINGERINGELHEIM-2018-BI-014441

PATIENT
  Age: 52 Year
  Sex: Female

DRUGS (80)
  1. APTIVUS [Suspect]
     Active Substance: TIPRANAVIR
     Indication: HIV infection
  2. APTIVUS [Suspect]
     Active Substance: TIPRANAVIR
  3. TIPRANAVIR [Suspect]
     Active Substance: TIPRANAVIR
     Indication: Product used for unknown indication
  4. OLODATEROL HYDROCHLORIDE\TIOTROPIUM BROMIDE MONOHYDRATE [Suspect]
     Active Substance: OLODATEROL HYDROCHLORIDE\TIOTROPIUM BROMIDE MONOHYDRATE
     Indication: Product used for unknown indication
  5. ATROVENT [Suspect]
     Active Substance: IPRATROPIUM BROMIDE
     Indication: Product used for unknown indication
  6. BUDESONIDE [Suspect]
     Active Substance: BUDESONIDE
     Indication: Product used for unknown indication
  7. SPIRIVA [Suspect]
     Active Substance: TIOTROPIUM BROMIDE MONOHYDRATE
     Indication: Product used for unknown indication
  8. ALBUTEROL [Suspect]
     Active Substance: ALBUTEROL
     Indication: Product used for unknown indication
  9. DIAZEPAM [Suspect]
     Active Substance: DIAZEPAM
     Indication: Depression
  10. DIAZEPAM [Suspect]
     Active Substance: DIAZEPAM
  11. DIAZEPAM [Suspect]
     Active Substance: DIAZEPAM
  12. DIAZEPAM [Suspect]
     Active Substance: DIAZEPAM
  13. ALBUTEROL SULFATE [Suspect]
     Active Substance: ALBUTEROL SULFATE
     Indication: Product used for unknown indication
  14. ACETAMINOPHEN [Suspect]
     Active Substance: ACETAMINOPHEN
     Indication: Pain in extremity
  15. CLONAZEPAM [Suspect]
     Active Substance: CLONAZEPAM
     Indication: Hypomania
  16. CLONAZEPAM [Suspect]
     Active Substance: CLONAZEPAM
  17. OLANZAPINE [Suspect]
     Active Substance: OLANZAPINE
     Indication: Psychotic disorder
  18. OLANZAPINE [Suspect]
     Active Substance: OLANZAPINE
     Indication: Musculoskeletal stiffness
  19. PROCYCLIDINE HYDROCHLORIDE [Suspect]
     Active Substance: PROCYCLIDINE HYDROCHLORIDE
     Indication: Prophylaxis
  20. PROCYCLIDINE HYDROCHLORIDE [Suspect]
     Active Substance: PROCYCLIDINE HYDROCHLORIDE
     Indication: Musculoskeletal stiffness
  21. QUETIAPINE [Suspect]
     Active Substance: QUETIAPINE
     Indication: Psychotic disorder
  22. RISPERIDONE [Suspect]
     Active Substance: RISPERIDONE
     Indication: Psychotic disorder
  23. TRAZODONE [Suspect]
     Active Substance: TRAZODONE HYDROCHLORIDE
     Indication: Depression
  24. TEGRETOL [Suspect]
     Active Substance: CARBAMAZEPINE
     Indication: Hypomania
  25. ZYPREXA [Suspect]
     Active Substance: OLANZAPINE
     Indication: Psychotic disorder
  26. ZYPREXA [Suspect]
     Active Substance: OLANZAPINE
  27. DIVALPROEX SODIUM [Suspect]
     Active Substance: DIVALPROEX SODIUM
     Indication: Product used for unknown indication
  28. DIVALPROEX SODIUM [Suspect]
     Active Substance: DIVALPROEX SODIUM
  29. NUCALA [Suspect]
     Active Substance: MEPOLIZUMAB
     Indication: Product used for unknown indication
  30. AZITHROMYCIN [Suspect]
     Active Substance: AZITHROMYCIN
     Indication: Product used for unknown indication
  31. BREO ELLIPTA [Suspect]
     Active Substance: FLUTICASONE FUROATE\VILANTEROL TRIFENATATE
     Indication: Product used for unknown indication
  32. OLODATEROL HYDROCHLORIDE\TIOTROPIUM BROMIDE MONOHYDRATE [Suspect]
     Active Substance: OLODATEROL HYDROCHLORIDE\TIOTROPIUM BROMIDE MONOHYDRATE
     Indication: Product used for unknown indication
  33. OMNARIS [Suspect]
     Active Substance: CICLESONIDE
     Indication: Product used for unknown indication
  34. MOXIFLOXACIN [Suspect]
     Active Substance: MOXIFLOXACIN
     Indication: Product used for unknown indication
  35. NASONEX [Suspect]
     Active Substance: MOMETASONE FUROATE
     Indication: Product used for unknown indication
  36. ZENHALE [Suspect]
     Active Substance: FORMOTEROL FUMARATE\MOMETASONE FUROATE
     Indication: Product used for unknown indication
  37. PREDNISONE [Suspect]
     Active Substance: PREDNISONE
     Indication: Product used for unknown indication
  38. SINGULAIR [Suspect]
     Active Substance: MONTELUKAST SODIUM
     Indication: Product used for unknown indication
  39. ANORO ELLIPTA [Suspect]
     Active Substance: UMECLIDINIUM BROMIDE\VILANTEROL TRIFENATATE
     Indication: Product used for unknown indication
  40. EPIVAL [Suspect]
     Active Substance: DIVALPROEX SODIUM
     Indication: Product used for unknown indication
  41. EPIVAL [Suspect]
     Active Substance: DIVALPROEX SODIUM
  42. EPIVAL [Suspect]
     Active Substance: DIVALPROEX SODIUM
  43. ACLIDINIUM BROMIDE\FORMOTEROL FUMARATE [Suspect]
     Active Substance: ACLIDINIUM BROMIDE\FORMOTEROL FUMARATE
     Indication: Product used for unknown indication
  44. SEROQUEL [Suspect]
     Active Substance: QUETIAPINE FUMARATE
     Indication: Product used for unknown indication
  45. FORMOTEROL FUMARATE\MOMETASONE FUROATE [Suspect]
     Active Substance: FORMOTEROL FUMARATE\MOMETASONE FUROATE
     Indication: Product used for unknown indication
  46. TIOTROPIUM BROMIDE MONOHYDRATE [Suspect]
     Active Substance: TIOTROPIUM BROMIDE MONOHYDRATE
     Indication: Product used for unknown indication
  47. AZITHROMYCIN ANHYDROUS [Suspect]
     Active Substance: AZITHROMYCIN ANHYDROUS
     Indication: Product used for unknown indication
  48. ACETAMINOPHEN AND DIPHENHYDRAMINE HYDROCHLORIDE [Suspect]
     Active Substance: ACETAMINOPHEN\DIPHENHYDRAMINE HYDROCHLORIDE
     Indication: Product used for unknown indication
  49. ACLIDINIUM BROMIDE\FORMOTEROL FUMARATE [Suspect]
     Active Substance: ACLIDINIUM BROMIDE\FORMOTEROL FUMARATE
     Indication: Product used for unknown indication
  50. ACLIDINIUM BROMIDE [Suspect]
     Active Substance: ACLIDINIUM BROMIDE
     Indication: Product used for unknown indication
  51. CIPROFLOXACIN HYDROCHLORIDE [Suspect]
     Active Substance: CIPROFLOXACIN HYDROCHLORIDE
     Indication: Product used for unknown indication
  52. GLYCOPYRROLATE [Suspect]
     Active Substance: GLYCOPYRROLATE
     Indication: Product used for unknown indication
  53. GLYCOPYRRONIUM\INDACATEROL [Suspect]
     Active Substance: GLYCOPYRRONIUM\INDACATEROL
     Indication: Product used for unknown indication
  54. UMECLIDINIUM BROMIDE [Suspect]
     Active Substance: UMECLIDINIUM BROMIDE
     Indication: Product used for unknown indication
  55. MOXIFLOXACIN HYDROCHLORIDE [Suspect]
     Active Substance: MOXIFLOXACIN HYDROCHLORIDE
     Indication: Product used for unknown indication
  56. ATOVAQUONE\PROGUANIL [Concomitant]
     Active Substance: ATOVAQUONE\PROGUANIL
     Indication: Product used for unknown indication
  57. BISACODYL [Concomitant]
     Active Substance: BISACODYL
     Indication: Product used for unknown indication
  58. LAMIVUDINE [Concomitant]
     Active Substance: LAMIVUDINE
     Indication: Product used for unknown indication
  59. ABACAVIR [Concomitant]
     Active Substance: ABACAVIR
     Indication: Product used for unknown indication
  60. NYSTATIN [Concomitant]
     Active Substance: NYSTATIN
     Indication: Product used for unknown indication
  61. CALCIUM CARBONATE [Concomitant]
     Active Substance: CALCIUM CARBONATE
     Indication: Product used for unknown indication
  62. CHLORAL HYDRATE [Concomitant]
     Active Substance: CHLORAL HYDRATE
     Indication: Product used for unknown indication
  63. IMODIUM [Concomitant]
     Active Substance: LOPERAMIDE HYDROCHLORIDE
     Indication: Product used for unknown indication
  64. KALETRA [Concomitant]
     Active Substance: LOPINAVIR\RITONAVIR
     Indication: Product used for unknown indication
  65. LACTULOSE [Concomitant]
     Active Substance: LACTULOSE
     Indication: Product used for unknown indication
  66. SERTRALINE [Concomitant]
     Active Substance: SERTRALINE HYDROCHLORIDE
     Indication: Product used for unknown indication
  67. LITHIUM [Concomitant]
     Active Substance: LITHIUM
     Indication: Product used for unknown indication
  68. ENFUVIRTIDE [Concomitant]
     Active Substance: ENFUVIRTIDE
     Indication: Product used for unknown indication
  69. ACETAMINOPHEN\DIPHENHYDRAMINE HYDROCHLORIDE\PHENYLEPHRINE HYDROCHLORID [Concomitant]
     Active Substance: ACETAMINOPHEN\DIPHENHYDRAMINE HYDROCHLORIDE\PHENYLEPHRINE HYDROCHLORIDE
     Indication: Product used for unknown indication
  70. BENADRYL [Concomitant]
     Active Substance: DIPHENHYDRAMINE HYDROCHLORIDE
     Indication: Product used for unknown indication
  71. ACRIVASTINE [Concomitant]
     Active Substance: ACRIVASTINE
     Indication: Product used for unknown indication
  72. NYSTATIN\ZINC OXIDE [Concomitant]
     Active Substance: NYSTATIN\ZINC OXIDE
     Indication: Product used for unknown indication
  73. ACETAMINOPHEN/DIPHENHYDRAMINE HYDROCHLORIDE/PHENYLEPHRINE HYDROCHLORID [Concomitant]
     Indication: Product used for unknown indication
  74. ATOVAQUONE\PROGUANIL HYDROCHLORIDE [Concomitant]
     Active Substance: ATOVAQUONE\PROGUANIL HYDROCHLORIDE
     Indication: Product used for unknown indication
  75. BENADRYL [Concomitant]
     Active Substance: DIPHENHYDRAMINE HYDROCHLORIDE
     Indication: Product used for unknown indication
  76. Fuzeon single use vial [Concomitant]
     Indication: Product used for unknown indication
     Route: 058
  77. MEGA VIM [Concomitant]
     Indication: Product used for unknown indication
  78. Teva-atovaquone proguanil [Concomitant]
     Indication: Product used for unknown indication
  79. DIPHENHYDRAMINE HYDROCHLORIDE\LIDOCAINE HYDROCHLORIDE\NYSTATIN [Concomitant]
     Active Substance: DIPHENHYDRAMINE HYDROCHLORIDE\LIDOCAINE HYDROCHLORIDE\NYSTATIN
     Indication: Product used for unknown indication
  80. ENFUVIRTIDE [Concomitant]
     Active Substance: ENFUVIRTIDE
     Indication: Product used for unknown indication

REACTIONS (28)
  - Cholelithiasis [Recovered/Resolved]
  - Condition aggravated [Recovered/Resolved]
  - Psychotic disorder [Recovered/Resolved]
  - Hepatic enzyme increased [Recovered/Resolved]
  - Hepatotoxicity [Recovered/Resolved]
  - Hypomania [Recovered/Resolved]
  - Schizophrenia [Recovered/Resolved]
  - Jaundice cholestatic [Recovered/Resolved]
  - Asthma-chronic obstructive pulmonary disease overlap syndrome [Recovered/Resolved]
  - Bronchiectasis [Recovered/Resolved]
  - Cardiac murmur [Recovered/Resolved]
  - Chronic obstructive pulmonary disease [Recovered/Resolved]
  - Gastrooesophageal reflux disease [Recovered/Resolved]
  - Lung neoplasm malignant [Recovered/Resolved]
  - Nasal polyps [Recovered/Resolved]
  - Blood bilirubin increased [Recovered/Resolved]
  - Sarcoidosis [Recovered/Resolved]
  - Total lung capacity increased [Recovered/Resolved]
  - Wheezing [Recovered/Resolved]
  - Oedema peripheral [Recovered/Resolved]
  - Vomiting [Recovered/Resolved]
  - Rhinitis allergic [Recovered/Resolved]
  - Pneumonia [Recovered/Resolved]
  - Nausea [Recovered/Resolved]
  - Off label use [Recovered/Resolved]
  - Product use in unapproved indication [Unknown]
  - Nasal polyps [Unknown]
  - Pain in extremity [Unknown]
